FAERS Safety Report 9212800 (Version 1)
Quarter: 2013Q2

REPORT INFORMATION
  Report Type: Spontaneous
  Country: PH (occurrence: PH)
  Receive Date: 20130405
  Receipt Date: 20130405
  Transmission Date: 20140414
  Serious: Yes (Death, Other)
  Sender: FDA-Public Use
  Company Number: PH-MERCK-1304PHL001350

PATIENT
  Sex: 0

DRUGS (1)
  1. EZETROL [Suspect]
     Dosage: 1 DF, QD
     Route: 048

REACTIONS (2)
  - Breast cancer [Fatal]
  - Multi-organ failure [Fatal]
